FAERS Safety Report 8135028-1 (Version None)
Quarter: 2012Q1

REPORT INFORMATION
  Report Type: 
  Country: None (occurrence: None)
  Receive Date: 20120214
  Receipt Date: 20120130
  Transmission Date: 20120608
  Serious: Yes (Other)
  Sender: FDA-Public Use
  Company Number: NO-US-EMD SERONO, INC.-7108275

PATIENT
  Sex: Female

DRUGS (7)
  1. PREDNISOLONE [Concomitant]
     Indication: ABORTION SPONTANEOUS
  2. CYCLOGEST [Concomitant]
     Indication: IN VITRO FERTILISATION
  3. ENOXAPARIN SODIUM [Concomitant]
     Indication: ABORTION SPONTANEOUS
     Route: 058
     Dates: start: 20100728, end: 20100915
  4. ENOXAPARIN SODIUM [Concomitant]
     Indication: OFF LABEL USE
     Route: 058
     Dates: start: 20100728, end: 20100915
  5. PREDNISOLONE [Concomitant]
     Indication: OFF LABEL USE
     Route: 048
     Dates: start: 20100728, end: 20100915
  6. GONAL-F [Suspect]
     Indication: IN VITRO FERTILISATION
     Route: 058
     Dates: start: 20100728, end: 20100807
  7. CHORIONIC GONADOTROPIN [Concomitant]
     Indication: OVULATION INDUCTION
     Route: 058
     Dates: start: 20100808, end: 20100808

REACTIONS (1)
  - PREMATURE DELIVERY [None]
